FAERS Safety Report 9789440 (Version 9)
Quarter: 2015Q2

REPORT INFORMATION
  Report Type: Spontaneous
  Country: CH (occurrence: CH)
  Receive Date: 20131231
  Receipt Date: 20150430
  Transmission Date: 20150821
  Serious: Yes (Other)
  Sender: FDA-Public Use
  Company Number: CH-AMGEN-CHESP2013090286

PATIENT
  Age: 29 Year
  Sex: Male
  Weight: 85 kg

DRUGS (1)
  1. XGEVA [Suspect]
     Active Substance: DENOSUMAB
     Indication: GIANT CELL TUMOUR OF TENDON SHEATH
     Dosage: 120 MG, QMO
     Route: 065
     Dates: start: 20131016

REACTIONS (15)
  - Wound [Unknown]
  - Off label use [Unknown]
  - Infection [Not Recovered/Not Resolved]
  - Walking aid user [Recovered/Resolved]
  - Erythema [Unknown]
  - Necrosis [Unknown]
  - Arthralgia [Unknown]
  - Fistula [Not Recovered/Not Resolved]
  - Abscess [Unknown]
  - Post procedural haemorrhage [Unknown]
  - Acne [Recovering/Resolving]
  - Hyperthermia [Unknown]
  - Bone giant cell tumour [Unknown]
  - Impaired healing [Unknown]
  - Secretion discharge [Unknown]

NARRATIVE: CASE EVENT DATE: 201312
